FAERS Safety Report 15101705 (Version 1)
Quarter: 2018Q3

REPORT INFORMATION
  Report Type: Spontaneous
  Country: GB (occurrence: GB)
  Receive Date: 20180703
  Receipt Date: 20180703
  Transmission Date: 20181010
  Serious: Yes (Other)
  Sender: FDA-Public Use
  Company Number: GB-BAYER-2018-120852

PATIENT
  Age: 28 Year
  Sex: Female
  Weight: 64 kg

DRUGS (1)
  1. MIRENA [Suspect]
     Active Substance: LEVONORGESTREL
     Indication: CONTRACEPTION
     Dosage: 1 DF, UNK
     Route: 015

REACTIONS (5)
  - Tongue ulceration [Recovered/Resolved]
  - Tongue erythema [Unknown]
  - Glossodynia [Recovering/Resolving]
  - Tongue discolouration [Unknown]
  - Swollen tongue [Unknown]

NARRATIVE: CASE EVENT DATE: 201602
